FAERS Safety Report 25866468 (Version 3)
Quarter: 2025Q4

REPORT INFORMATION
  Report Type: Spontaneous
  Country: US (occurrence: US)
  Receive Date: 20250930
  Receipt Date: 20251022
  Transmission Date: 20260117
  Serious: No
  Sender: PFIZER
  Company Number: US-PFIZER INC-202500194002

PATIENT
  Age: 48 Year
  Sex: Male

DRUGS (2)
  1. LITFULO [Suspect]
     Active Substance: RITLECITINIB TOSYLATE
     Indication: Alopecia areata
     Dosage: 50 MG, 1X/DAY
     Route: 048
  2. TRIAMCINOLONE ACETONIDE [Concomitant]
     Active Substance: TRIAMCINOLONE ACETONIDE
     Indication: Alopecia areata
     Dosage: 0.1 %, 2X/DAY (APPLY TO AFFECTED AREAS OF THE FACE X2WKS THEN DISCONTINUE, PAUSE 2-4WKS BETWEEN APP)
     Route: 061

REACTIONS (1)
  - Back pain [Not Recovered/Not Resolved]
